FAERS Safety Report 16344422 (Version 1)
Quarter: 2019Q2

REPORT INFORMATION
  Report Type: Spontaneous
  Country: IN (occurrence: IN)
  Receive Date: 20190522
  Receipt Date: 20190522
  Transmission Date: 20190711
  Serious: Yes (Death)
  Sender: FDA-Public Use
  Company Number: IN-GE HEALTHCARE LIFE SCIENCES-2019CSU002629

PATIENT

DRUGS (2)
  1. OMNIPAQUE [Suspect]
     Active Substance: IOHEXOL
     Indication: PRODUCT USED FOR UNKNOWN INDICATION
  2. OMNIPAQUE [Suspect]
     Active Substance: IOHEXOL
     Indication: SCAN BRAIN
     Dosage: 25 ML, SINGLE
     Route: 042
     Dates: start: 20190513, end: 20190513

REACTIONS (2)
  - Anaphylactic reaction [Fatal]
  - Vomiting [Fatal]

NARRATIVE: CASE EVENT DATE: 20190513
